FAERS Safety Report 4656059-X (Version None)
Quarter: 2005Q2

REPORT INFORMATION
  Report Type: 
  Country: None (occurrence: None)
  Receive Date: 20050505
  Receipt Date: 20050425
  Transmission Date: 20051028
  Serious: Yes (Other)
  Sender: FDA-Public Use
  Company Number: AW-2005-004779

PATIENT
  Age: 83 Year
  Sex: Female
  Weight: 100 kg

DRUGS (1)
  1. ULTRAVIST 300 [Suspect]
     Indication: COMPUTERISED TOMOGRAM
     Dosage: 100 MG, 1 DOSE, INTRAVENOUS
     Route: 042
     Dates: start: 20050120, end: 20050120

REACTIONS (4)
  - ANGIONEUROTIC OEDEMA [None]
  - DRUG HYPERSENSITIVITY [None]
  - FALL [None]
  - SYNCOPE [None]
